FAERS Safety Report 4354284-9 (Version None)
Quarter: 2004Q2

REPORT INFORMATION
  Report Type: 
  Country: None (occurrence: None)
  Receive Date: 20040503
  Receipt Date: 20040413
  Transmission Date: 20050107
  Serious: Yes (Hospitalization)
  Sender: FDA-Public Use
  Company Number: 6008385

PATIENT
  Age: 57 Year
  Sex: Female

DRUGS (2)
  1. DETENSIEL (10 MG, TABLETS)(BISOPROLOL FUMARATE) [Suspect]
     Indication: ESSENTIAL HYPERTENSION
     Dosage: 10,000 MG (10 MG, 1 IN 1 D), ORAL
     Route: 048
     Dates: start: 20040125, end: 20040203
  2. RAMIPRIL [Concomitant]

REACTIONS (9)
  - ABDOMINAL PAIN UPPER [None]
  - DIARRHOEA [None]
  - DYSPNOEA [None]
  - ELECTROCARDIOGRAM QT PROLONGED [None]
  - HOT FLUSH [None]
  - HYPOKALAEMIA [None]
  - MALAISE [None]
  - PALPITATIONS [None]
  - TORSADE DE POINTES [None]
